FAERS Safety Report 14420307 (Version 2)
Quarter: 2022Q1

REPORT INFORMATION
  Report Type: Spontaneous
  Country: US (occurrence: None)
  Receive Date: 20180122
  Receipt Date: 20220110
  Transmission Date: 20220423
  Serious: No
  Sender: FDA-Public Use
  Company Number: US-ROCHE-1925884

PATIENT
  Sex: Female
  Weight: 53.572 kg

DRUGS (3)
  1. RITUXAN [Suspect]
     Active Substance: RITUXIMAB
     Indication: Multiple sclerosis
     Dosage: INFUSION FOR 8 HOURS EVERY SIX MONTHS ;ONGOING: NO
     Route: 042
     Dates: start: 20151104, end: 20160908
  2. OCREVUS [Suspect]
     Active Substance: OCRELIZUMAB
     Indication: Primary progressive multiple sclerosis
     Route: 065
     Dates: start: 20170123
  3. TECFIDERA [Suspect]
     Active Substance: DIMETHYL FUMARATE
     Indication: Product used for unknown indication
     Dosage: NO
     Route: 048

REACTIONS (5)
  - Ocular neoplasm [Recovered/Resolved]
  - Arthralgia [Not Recovered/Not Resolved]
  - Drug ineffective [Unknown]
  - Off label use [Unknown]
  - Headache [Not Recovered/Not Resolved]

NARRATIVE: CASE EVENT DATE: 20180101
